FAERS Safety Report 11820364 (Version 1)
Quarter: 2015Q4

REPORT INFORMATION
  Report Type: Report from Study
  Country: BR (occurrence: BR)
  Receive Date: 20151210
  Receipt Date: 20151210
  Transmission Date: 20160305
  Serious: Yes (Disabling, Other)
  Sender: FDA-Public Use
  Company Number: BR-ABBVIE-14K-020-1301259-00

PATIENT
  Sex: Female
  Weight: 70 kg

DRUGS (6)
  1. INSULIN [Concomitant]
     Active Substance: INSULIN NOS
     Indication: DIABETES MELLITUS
     Dosage: 28IU IN THE MORNING AND 16IU AT NIGHT
     Route: 050
     Dates: start: 2012
  2. UNSPECIFIED CORTICOID [Suspect]
     Active Substance: UNSPECIFIED INGREDIENT
     Indication: PRODUCT USED FOR UNKNOWN INDICATION
     Route: 065
  3. UNSPECIFIED EYE DROPS [Suspect]
     Active Substance: UNSPECIFIED INGREDIENT
     Indication: PRODUCT USED FOR UNKNOWN INDICATION
     Route: 047
  4. HUMIRA [Suspect]
     Active Substance: ADALIMUMAB
     Route: 058
  5. VIMOVO [Concomitant]
     Active Substance: ESOMEPRAZOLE MAGNESIUM\NAPROXEN
     Indication: PAIN
     Dosage: EACH 12 HOURS
     Route: 048
     Dates: start: 201404
  6. HUMIRA [Suspect]
     Active Substance: ADALIMUMAB
     Indication: RHEUMATOID ARTHRITIS
     Route: 058
     Dates: start: 20110101

REACTIONS (14)
  - Tendonitis [Recovered/Resolved]
  - Arthralgia [Recovering/Resolving]
  - Rash generalised [Recovered/Resolved]
  - Throat tightness [Recovered/Resolved]
  - Monoparesis [Recovered/Resolved]
  - Blindness [Unknown]
  - Eye inflammation [Unknown]
  - Iris disorder [Unknown]
  - Cataract [Not Recovered/Not Resolved]
  - Gait disturbance [Recovering/Resolving]
  - Weight increased [Unknown]
  - Pain [Unknown]
  - Peripheral swelling [Unknown]
  - Chondropathy [Unknown]

NARRATIVE: CASE EVENT DATE: 2015
